FAERS Safety Report 23338304 (Version 1)
Quarter: 2023Q4

REPORT INFORMATION
  Report Type: Report from Study
  Country: EG (occurrence: EG)
  Receive Date: 20231226
  Receipt Date: 20231226
  Transmission Date: 20240109
  Serious: Yes (Other)
  Sender: FDA-Public Use
  Company Number: EG-002147023-NVSC2022EG037205

PATIENT
  Age: 9 Year
  Sex: Female
  Weight: 32 kg

DRUGS (7)
  1. OMNITROPE [Suspect]
     Active Substance: SOMATROPIN
     Indication: Growth hormone deficiency
     Dosage: 0.7 MG, QD
     Route: 058
     Dates: start: 20220202
  2. OMNITROPE [Suspect]
     Active Substance: SOMATROPIN
     Dosage: 0.8 MG, QD
     Route: 058
  3. OMNITROPE [Suspect]
     Active Substance: SOMATROPIN
     Dosage: 0.9 MG, QD
     Route: 058
  4. CALDIN ZINC [Concomitant]
     Indication: Supplementation therapy
     Dosage: 5 CM, QD
     Route: 048
     Dates: start: 20220201
  5. ELBAVIT [Concomitant]
     Indication: Nutritional supplementation
     Dosage: 5 CM, QD
     Route: 048
     Dates: start: 20220201
  6. Feroglobin [Concomitant]
     Indication: Nutritional supplementation
     Dosage: 5 CM, QD
     Route: 048
     Dates: start: 20220201
  7. Ferotal extra [Concomitant]
     Indication: Supplementation therapy
     Dosage: 5 CM, QD
     Route: 048
     Dates: start: 20230708

REACTIONS (5)
  - Fungal skin infection [Recovered/Resolved]
  - Headache [Recovered/Resolved]
  - Injection site reaction [Recovered/Resolved]
  - Product availability issue [Not Recovered/Not Resolved]
  - Product dose omission issue [Not Recovered/Not Resolved]

NARRATIVE: CASE EVENT DATE: 20220201
